FAERS Safety Report 4398353-6 (Version None)
Quarter: 2004Q3

REPORT INFORMATION
  Report Type: 
  Country: None (occurrence: None)
  Receive Date: 20040714
  Receipt Date: 20040714
  Transmission Date: 20050211
  Serious: Yes (Life-Threatening, Hospitalization)
  Sender: FDA-Public Use
  Company Number: None

PATIENT
  Age: 69 Year
  Sex: Male
  Weight: 61.2356 kg

DRUGS (4)
  1. WARFARIN SODIUM [Suspect]
     Indication: CEREBROVASCULAR ACCIDENT PROPHYLAXIS
     Dosage: 2.5 MG PO DAILY CHRONIC
     Route: 048
  2. ZOCOR [Concomitant]
  3. VERAPAMIL [Concomitant]
  4. HYDROCHLOROTHIAZIDE [Concomitant]

REACTIONS (11)
  - AMNESIA [None]
  - ASTHENIA [None]
  - BALANCE DISORDER [None]
  - BRAIN OEDEMA [None]
  - CONVULSION [None]
  - FALL [None]
  - HEAD INJURY [None]
  - HEMIPARESIS [None]
  - INTERNATIONAL NORMALISED RATIO DECREASED [None]
  - SOMNOLENCE [None]
  - SUBDURAL HAEMATOMA [None]
